FAERS Safety Report 16155688 (Version 1)
Quarter: 2019Q2

REPORT INFORMATION
  Report Type: Spontaneous
  Country: GB (occurrence: GB)
  Receive Date: 20190404
  Receipt Date: 20190404
  Transmission Date: 20190711
  Serious: Yes (Hospitalization)
  Sender: FDA-Public Use
  Company Number: GB-ROCHE-2295338

PATIENT
  Age: 55 Year
  Sex: Female

DRUGS (10)
  1. LISINOPRIL. [Concomitant]
     Active Substance: LISINOPRIL
     Route: 048
  2. SIMVASTATIN. [Concomitant]
     Active Substance: SIMVASTATIN
     Route: 048
  3. DULOXETINE. [Concomitant]
     Active Substance: DULOXETINE
     Route: 048
  4. METFORMIN [Concomitant]
     Active Substance: METFORMIN HYDROCHLORIDE
     Route: 048
  5. ACETYLSALICYLIC ACID [Concomitant]
     Active Substance: ASPIRIN
     Route: 048
  6. PREGABALIN. [Concomitant]
     Active Substance: PREGABALIN
     Route: 048
  7. RANITIDINE. [Concomitant]
     Active Substance: RANITIDINE
     Route: 048
  8. PREDNISOLONE. [Concomitant]
     Active Substance: PREDNISOLONE
     Route: 048
  9. MYCOPHENOLATE MOFETIL. [Suspect]
     Active Substance: MYCOPHENOLATE MOFETIL
     Indication: SYSTEMIC LUPUS ERYTHEMATOSUS
     Route: 048
  10. BISOPROLOL [Concomitant]
     Active Substance: BISOPROLOL
     Route: 050

REACTIONS (1)
  - Metabolic acidosis [Recovered/Resolved]
